FAERS Safety Report 13940985 (Version 2)
Quarter: 2017Q4

REPORT INFORMATION
  Report Type: Spontaneous
  Country: JP (occurrence: JP)
  Receive Date: 20170906
  Receipt Date: 20171020
  Transmission Date: 20180320
  Serious: Yes (Other)
  Sender: FDA-Public Use
  Company Number: JP-PFIZER INC-2017378032

PATIENT
  Age: 30 Year
  Sex: Female

DRUGS (3)
  1. SOLANAX [Suspect]
     Active Substance: ALPRAZOLAM
     Indication: ANXIETY
     Dosage: 1.2 MG, DAILY
     Route: 048
  2. SOLANAX [Suspect]
     Active Substance: ALPRAZOLAM
     Indication: PANIC DISORDER
     Dosage: 0.4 MG, DAILY
     Route: 048
     Dates: start: 20170322
  3. SOLANAX [Suspect]
     Active Substance: ALPRAZOLAM
     Indication: DEPRESSIVE SYMPTOM
     Dosage: 2.0 MG DAILY AT TIMES
     Route: 048

REACTIONS (1)
  - Hyperprolactinaemia [Recovered/Resolved]

NARRATIVE: CASE EVENT DATE: 20170220
